FAERS Safety Report 23394528 (Version 4)
Quarter: 2024Q1

REPORT INFORMATION
  Report Type: Report from Study
  Country: US (occurrence: US)
  Receive Date: 20240111
  Receipt Date: 20240221
  Transmission Date: 20240409
  Serious: Yes (Death, Hospitalization, Other)
  Sender: FDA-Public Use
  Company Number: US-ABBVIE-5582344

PATIENT
  Age: 70 Year
  Sex: Male
  Weight: 62.595 kg

DRUGS (2)
  1. RINVOQ [Suspect]
     Active Substance: UPADACITINIB
     Indication: Crohn^s disease
     Dosage: FORM STRENGTH: 45 MILLIGRAM
     Route: 048
     Dates: start: 20231011, end: 20231201
  2. PREDNISONE [Concomitant]
     Active Substance: PREDNISONE
     Indication: Crohn^s disease

REACTIONS (2)
  - Sepsis [Fatal]
  - Arthritis bacterial [Not Recovered/Not Resolved]

NARRATIVE: CASE EVENT DATE: 20231201
